FAERS Safety Report 17566570 (Version 3)
Quarter: 2020Q2

REPORT INFORMATION
  Report Type: Report from Study
  Country: US (occurrence: US)
  Receive Date: 20200320
  Receipt Date: 20200624
  Transmission Date: 20200713
  Serious: Yes (Hospitalization)
  Sender: FDA-Public Use
  Company Number: US-ROCHE-2568617

PATIENT
  Sex: Female

DRUGS (6)
  1. COBIMETINIB. [Suspect]
     Active Substance: COBIMETINIB
     Indication: POORLY DIFFERENTIATED THYROID CARCINOMA
     Route: 065
  2. NAB-PACLITAXEL [Concomitant]
     Active Substance: PACLITAXEL
  3. ATEZOLIZUMAB. [Suspect]
     Active Substance: ATEZOLIZUMAB
     Indication: POORLY DIFFERENTIATED THYROID CARCINOMA
     Route: 041
  4. PACLITAXEL. [Concomitant]
     Active Substance: PACLITAXEL
  5. VEMURAFENIB. [Suspect]
     Active Substance: VEMURAFENIB
     Indication: POORLY DIFFERENTIATED THYROID CARCINOMA
     Route: 065
  6. BEVACIZUMAB. [Suspect]
     Active Substance: BEVACIZUMAB
     Indication: POORLY DIFFERENTIATED THYROID CARCINOMA
     Route: 065

REACTIONS (2)
  - Pyrexia [Recovered/Resolved]
  - Platelet count decreased [Recovered/Resolved]

NARRATIVE: CASE EVENT DATE: 20200305
